FAERS Safety Report 12359817 (Version 1)
Quarter: 2016Q2

REPORT INFORMATION
  Report Type: Spontaneous
  Country: US (occurrence: None)
  Receive Date: 20160511
  Receipt Date: 20160511
  Transmission Date: 20160815
  Serious: Yes (Hospitalization)
  Sender: FDA-Public Use
  Company Number: None

PATIENT
  Age: 60 Year
  Sex: Female

DRUGS (1)
  1. ORENCIA [Suspect]
     Active Substance: ABATACEPT
     Indication: RHEUMATOID ARTHRITIS
     Dosage: 125MG/1ML QWEEK SQ
     Dates: start: 20150710, end: 20160429

REACTIONS (3)
  - Dyspnoea [None]
  - Influenza [None]
  - Pneumonia [None]

NARRATIVE: CASE EVENT DATE: 20160502
